FAERS Safety Report 24632452 (Version 2)
Quarter: 2024Q4

REPORT INFORMATION
  Report Type: Spontaneous
  Country: CH (occurrence: CH)
  Receive Date: 20241118
  Receipt Date: 20241129
  Transmission Date: 20250115
  Serious: Yes (Hospitalization, Other)
  Sender: ALNYLAM PHARMACEUTICALS
  Company Number: CH-ALNYLAM PHARMACEUTICALS, INC.-ALN-2024-006152

PATIENT

DRUGS (16)
  1. GIVLAARI [Suspect]
     Active Substance: GIVOSIRAN SODIUM
     Indication: Porphyria acute
     Dosage: 2.5 MILLIGRAM/KILOGRAM
     Route: 058
     Dates: start: 20220623, end: 20220623
  2. GIVLAARI [Suspect]
     Active Substance: GIVOSIRAN SODIUM
     Dosage: UNK
     Route: 065
     Dates: start: 20240719, end: 20240719
  3. ELIQUIS [Concomitant]
     Active Substance: APIXABAN
     Indication: Prophylaxis
     Dosage: 1 DOSAGE FORM, BID
     Route: 048
     Dates: start: 20240808
  4. LISINOPRIL [Concomitant]
     Active Substance: LISINOPRIL
     Indication: Hypertension
     Dosage: 1 DOSAGE FORM, QD
     Route: 048
  5. ATENOLOL [Concomitant]
     Active Substance: ATENOLOL
     Indication: Hypertension
     Dosage: 1 DOSAGE FORM, QD
     Route: 048
  6. LACTITOL [Concomitant]
     Active Substance: LACTITOL
     Indication: Constipation prophylaxis
     Dosage: 15 MILLILITER
     Route: 048
  7. AMITRIPTYLINE [Concomitant]
     Active Substance: AMITRIPTYLINE
     Indication: Antidepressant therapy
     Dosage: 25 MG/PIECE
     Route: 048
  8. OXYCODONE HYDROCHLORIDE [Concomitant]
     Active Substance: OXYCODONE HYDROCHLORIDE
     Indication: Analgesic therapy
     Dosage: 5 MG/PIECE, QD
     Route: 048
  9. LASIX [Concomitant]
     Active Substance: FUROSEMIDE
     Indication: Diuretic therapy
     Dosage: 1 DOSAGE FORM, QD
     Route: 048
  10. ACETAMINOPHEN [Concomitant]
     Active Substance: ACETAMINOPHEN
     Indication: Analgesic therapy
     Dosage: 4 DOSAGE FORM
     Route: 048
  11. MAGNESIUM [Concomitant]
     Active Substance: MAGNESIUM
     Indication: Muscle spasms
     Dosage: 1 DOSAGE FORM
     Route: 048
  12. OXYCODON NALOXON SANDOZ [Concomitant]
     Indication: Analgesic therapy
     Dosage: 20/10 MG, QD
     Route: 048
  13. Pantothen [Concomitant]
     Indication: Product used for unknown indication
     Dosage: UNK UNK, BID
     Route: 061
  14. NIFEDIPIN MEPHA [Concomitant]
     Indication: Hypertension
     Dosage: UNK UNK, BID
     Route: 048
  15. SODIUM PICOSULFATE [Concomitant]
     Active Substance: SODIUM PICOSULFATE
     Indication: Constipation prophylaxis
     Dosage: UNK, QD
     Route: 048
  16. Paspertin [Concomitant]
     Indication: Product used for unknown indication
     Dosage: 30 DROP, QD
     Route: 048

REACTIONS (5)
  - Postoperative delirium [Not Recovered/Not Resolved]
  - Dementia Alzheimer^s type [Not Recovered/Not Resolved]
  - Blood creatinine increased [Recovered/Resolved]
  - Knee operation [Recovered/Resolved]
  - Osteoarthritis [Recovered/Resolved]

NARRATIVE: CASE EVENT DATE: 20240730
